FAERS Safety Report 8933339 (Version 2)
Quarter: 2012Q4

REPORT INFORMATION
  Report Type: 
  Country: US (occurrence: US)
  Receive Date: 20121129
  Receipt Date: 20121203
  Transmission Date: 20130627
  Serious: Yes (Other)
  Sender: FDA-Public Use
  Company Number: US-AMGEN-USASP2012075142

PATIENT
  Age: 52 Year
  Sex: Female
  Weight: 86.62 kg

DRUGS (7)
  1. ENBREL [Suspect]
     Indication: PSORIATIC ARTHROPATHY
     Dosage: 50 mg, qwk
     Route: 058
     Dates: start: 20100801, end: 201208
  2. HUMIRA [Concomitant]
     Dosage: UNK
  3. NASACORT AQ [Concomitant]
     Dosage: 55 mcg/ac,  UNK
  4. FOLIC ACID [Concomitant]
     Dosage: 1 mg, UNK
  5. IBUPROFEN [Concomitant]
     Dosage: 800 mg, UNK
  6. METHIMAZOLE [Concomitant]
     Dosage: 10 mg, UNK
  7. METHOTREXATE [Concomitant]
     Dosage: 25 mg/ml, UNK

REACTIONS (14)
  - Neoplasm malignant [Not Recovered/Not Resolved]
  - Tuberculosis [Not Recovered/Not Resolved]
  - Rash [Unknown]
  - Adverse event [Not Recovered/Not Resolved]
  - Musculoskeletal stiffness [Not Recovered/Not Resolved]
  - Swelling [Not Recovered/Not Resolved]
  - Hypokinesia [Not Recovered/Not Resolved]
  - Pain [Not Recovered/Not Resolved]
  - Skin plaque [Not Recovered/Not Resolved]
  - Arthropathy [Not Recovered/Not Resolved]
  - Limb discomfort [Not Recovered/Not Resolved]
  - Liver function test abnormal [Recovered/Resolved]
  - Blood count abnormal [Recovered/Resolved]
  - Condition aggravated [Not Recovered/Not Resolved]
